FAERS Safety Report 12102187 (Version 2)
Quarter: 2016Q1

REPORT INFORMATION
  Report Type: Spontaneous
  Country: GB (occurrence: GB)
  Receive Date: 20160222
  Receipt Date: 20160223
  Transmission Date: 20160526
  Serious: Yes (Hospitalization, Disabling)
  Sender: FDA-Public Use
  Company Number: GB-TEVA-637061USA

PATIENT
  Age: 75 Year
  Sex: Female

DRUGS (20)
  1. OMEGA-3 ACIDS [Suspect]
     Active Substance: OMEGA-3 FATTY ACIDS
     Route: 065
  2. FOLIC ACID. [Suspect]
     Active Substance: FOLIC ACID
     Route: 065
  3. GARLIC EXTRACT [Suspect]
     Active Substance: GARLIC
     Route: 065
  4. VITAMIN C [Suspect]
     Active Substance: ASCORBIC ACID
     Route: 065
  5. MAGNESIUM [Suspect]
     Active Substance: MAGNESIUM
     Route: 065
  6. POTASSIUM [Suspect]
     Active Substance: POTASSIUM
     Route: 048
  7. STARFLOWER OIL [Suspect]
     Active Substance: HERBALS
     Route: 065
  8. GALZIN [Suspect]
     Active Substance: ZINC ACETATE
     Route: 065
  9. OSTEOCARE [Suspect]
     Active Substance: CALCIUM\CHOLECALCIFEROL\MAGNESIUM\ZINC
     Route: 065
  10. NAPROXEN. [Suspect]
     Active Substance: NAPROXEN
     Indication: OSTEOARTHRITIS
     Route: 048
     Dates: start: 2011, end: 20160203
  11. KELP [Suspect]
     Active Substance: KELP
     Route: 065
  12. LECITHIN [Suspect]
     Active Substance: LECITHIN
     Route: 048
  13. CRANBERRY. [Suspect]
     Active Substance: CRANBERRY
     Route: 065
  14. CHARCOAL [Suspect]
     Active Substance: ACTIVATED CHARCOAL
     Route: 048
  15. BUCKWHEAT. [Suspect]
     Active Substance: BUCKWHEAT
     Route: 048
  16. CELERY SEED [Suspect]
     Active Substance: CELERY SEED
     Route: 065
  17. QUININE SULFATE. [Suspect]
     Active Substance: QUININE SULFATE
     Dosage: 300 MILLIGRAM DAILY;
     Route: 065
  18. COD LIVER OIL [Suspect]
     Active Substance: COD LIVER OIL
     Dosage: 1 IU (INTERNATIONAL UNIT) DAILY;
     Route: 065
  19. TURMERIC [Suspect]
     Active Substance: TURMERIC
     Route: 048
  20. COENZYME Q10 [Suspect]
     Active Substance: UBIDECARENONE
     Route: 065

REACTIONS (2)
  - Left ventricular dysfunction [Recovering/Resolving]
  - Cardiac failure [Recovering/Resolving]
